FAERS Safety Report 6424281 (Version 8)
Quarter: 2018Q4

REPORT INFORMATION
  Report Type: Spontaneous
  Country: JP (occurrence: JP)
  Receive Date: 20070921
  Receipt Date: 20181226
  Transmission Date: 20190205
  Serious: Yes (Hospitalization)
  Sender: FDA-Public Use
  Company Number: PHBS2007JP11520

PATIENT
  Age: 29 Year
  Sex: Female
  Weight: 48 kg

DRUGS (5)
  1. GLIVEC [Suspect]
     Active Substance: IMATINIB MESYLATE
     Dosage: 400 MG, QD
     Route: 048
     Dates: start: 20070728
  2. GLIVEC [Suspect]
     Active Substance: IMATINIB MESYLATE
     Indication: CHRONIC MYELOID LEUKAEMIA
     Dosage: 400 MG, QD
     Route: 048
     Dates: start: 20020618, end: 20061104
  3. DAIO-KANZO-TO [Concomitant]
     Indication: CONSTIPATION
     Dosage: 25 MG, TID
     Route: 048
     Dates: start: 19960326, end: 20061104
  4. SELBEX [Concomitant]
     Active Substance: TEPRENONE
     Indication: GASTRITIS
     Dosage: 50 MG, UNK
     Route: 048
     Dates: start: 19960213, end: 20011104
  5. GLIVEC [Suspect]
     Active Substance: IMATINIB MESYLATE
     Dosage: 200 MG, QD
     Route: 048
     Dates: start: 20070615, end: 20070727

REACTIONS (9)
  - Exposure during pregnancy [Unknown]
  - Premature delivery [Unknown]
  - Vomiting [Recovering/Resolving]
  - Oedema [Unknown]
  - Pyrexia [Recovered/Resolved]
  - Generalised erythema [Recovered/Resolved]
  - Threatened labour [Recovered/Resolved]
  - Induced labour [Unknown]
  - Abdominal pain [Recovering/Resolving]

NARRATIVE: CASE EVENT DATE: 200206
